FAERS Safety Report 4428677-5 (Version None)
Quarter: 2004Q3

REPORT INFORMATION
  Report Type: 
  Country: None (occurrence: None)
  Receive Date: 20040818
  Receipt Date: 20031015
  Transmission Date: 20050211
  Serious: Yes (Hospitalization, Other)
  Sender: FDA-Public Use
  Company Number: US-BRISTOL-MYERS SQUIBB COMPANY-12411831

PATIENT
  Age: 55 Year
  Sex: Female
  Weight: 56 kg

DRUGS (9)
  1. TEQUIN [Suspect]
     Indication: SINUSITIS
     Route: 048
     Dates: start: 20030929, end: 20031008
  2. TEQUIN [Suspect]
     Indication: SINUSITIS
     Route: 042
     Dates: start: 20030924, end: 20030928
  3. HUMULIN INSULIN [Concomitant]
  4. HUMALOG [Concomitant]
  5. CYCLOSPORINE [Concomitant]
  6. IMURAN [Concomitant]
     Dates: start: 19880101
  7. DIAZEPAM [Concomitant]
     Indication: SLEEP DISORDER
  8. FUROSEMIDE [Concomitant]
     Dates: start: 20031001
  9. DHEA [Concomitant]
     Indication: INFLAMMATION

REACTIONS (6)
  - DECREASED APPETITE [None]
  - DIARRHOEA [None]
  - DYSPNOEA [None]
  - ORAL CANDIDIASIS [None]
  - STOMACH DISCOMFORT [None]
  - VAGINAL MYCOSIS [None]
